FAERS Safety Report 9162968 (Version 2)
Quarter: 2013Q1

REPORT INFORMATION
  Report Type: Spontaneous
  Country: US (occurrence: None)
  Receive Date: 20130222
  Receipt Date: 20130304
  Transmission Date: 20140127
  Serious: Yes (Hospitalization)
  Sender: FDA-Public Use
  Company Number: CABO-13002363

PATIENT
  Age: 63 Year
  Sex: Female

DRUGS (1)
  1. COMETRIQ [Suspect]
     Indication: THYROID CANCER
     Route: 048
     Dates: start: 20130130, end: 20130131

REACTIONS (2)
  - Pain [None]
  - Condition aggravated [None]
